FAERS Safety Report 15294995 (Version 1)
Quarter: 2018Q3

REPORT INFORMATION
  Report Type: Spontaneous
  Country: US (occurrence: US)
  Receive Date: 20180820
  Receipt Date: 20180820
  Transmission Date: 20181010
  Serious: No
  Sender: FDA-Public Use
  Company Number: US-PFIZER INC-2018329471

PATIENT
  Age: 55 Year
  Sex: Female
  Weight: 74.83 kg

DRUGS (2)
  1. ADVIL [Suspect]
     Active Substance: IBUPROFEN
     Indication: HEADACHE
  2. ADVIL [Suspect]
     Active Substance: IBUPROFEN
     Indication: PARAESTHESIA
     Dosage: 20 MG, 3X/DAY
     Route: 048

REACTIONS (2)
  - Drug ineffective [Unknown]
  - Expired product administered [Unknown]
